FAERS Safety Report 13199979 (Version 2)
Quarter: 2017Q2

REPORT INFORMATION
  Report Type: Spontaneous
  Country: GR (occurrence: GR)
  Receive Date: 20170208
  Receipt Date: 20170425
  Transmission Date: 20170830
  Serious: Yes (Hospitalization)
  Sender: FDA-Public Use
  Company Number: GR-MERCK KGAA-1062898

PATIENT
  Sex: Male
  Weight: 1.71 kg

DRUGS (1)
  1. NOVOTHYROX [Suspect]
     Active Substance: LEVOTHYROXINE SODIUM
     Indication: HYPOTHYROIDISM

REACTIONS (3)
  - Premature baby [Recovered/Resolved]
  - Cytomegalovirus infection [Recovered/Resolved]
  - Foetal growth restriction [Recovered/Resolved]
